FAERS Safety Report 8522609-6 (Version None)
Quarter: 2012Q3

REPORT INFORMATION
  Report Type: 
  Country: None (occurrence: None)
  Receive Date: 20120719
  Receipt Date: 20120716
  Transmission Date: 20120928
  Serious: Yes (Death)
  Sender: FDA-Public Use
  Company Number: BR-EISAI INC-E2020-11085-SPO-BR

PATIENT
  Sex: Female

DRUGS (1)
  1. DONEPEZIL HYDROCHLORIDE [Suspect]
     Indication: DEMENTIA ALZHEIMER'S TYPE
     Dosage: UNKNOWN
     Route: 048
     Dates: start: 20000101

REACTIONS (6)
  - BLOOD GLUCOSE FLUCTUATION [None]
  - DEHYDRATION [None]
  - WEIGHT DECREASED [None]
  - DEMENTIA ALZHEIMER'S TYPE [None]
  - FEMUR FRACTURE [None]
  - DIVERTICULITIS [None]
